FAERS Safety Report 4299141-1 (Version None)
Quarter: 2004Q1

REPORT INFORMATION
  Report Type: 
  Country: None (occurrence: None)
  Receive Date: 20040217
  Receipt Date: 20040217
  Transmission Date: 20041129
  Serious: Yes (Hospitalization)
  Sender: FDA-Public Use
  Company Number: None

PATIENT
  Sex: Male
  Weight: 75 kg

DRUGS (7)
  1. RITUXIMAB 10MG/ML GENENTEC [Suspect]
     Indication: NON-HODGKIN'S LYMPHOMA
     Dosage: 675MG ONCE INTRAVENOUS
     Route: 042
     Dates: start: 20030902, end: 20030902
  2. ALLOPURINOL [Concomitant]
  3. ATENOLOL [Concomitant]
  4. LEVOTHYROXINE SODIUM [Concomitant]
  5. LISINOPRIL [Concomitant]
  6. FILGRASTIM [Concomitant]
  7. SIMVASTATIN [Concomitant]

REACTIONS (1)
  - CRYPTOGENIC ORGANIZING PNEUMONIA [None]
